FAERS Safety Report 5482683-0 (Version None)
Quarter: 2007Q4

REPORT INFORMATION
  Report Type: 
  Country: None (occurrence: None)
  Receive Date: 20071011
  Receipt Date: 20070928
  Transmission Date: 20080405
  Serious: Yes (Other)
  Sender: FDA-Public Use
  Company Number: US-ELI_LILLY_AND_COMPANY-US200709006918

PATIENT
  Sex: Female

DRUGS (7)
  1. ALIMTA [Suspect]
     Indication: NON-SMALL CELL LUNG CANCER METASTATIC
     Dates: start: 20070101
  2. GEMZAR [Suspect]
     Indication: NON-SMALL CELL LUNG CANCER METASTATIC
     Dates: start: 20070824
  3. CARBOPLATIN [Concomitant]
     Indication: NON-SMALL CELL LUNG CANCER METASTATIC
     Dates: start: 20070824
  4. AVASTIN [Concomitant]
     Indication: NON-SMALL CELL LUNG CANCER METASTATIC
     Dates: start: 20070914
  5. NOVOLOG [Concomitant]
     Dosage: UNK, OTHER
  6. LANTUS [Concomitant]
  7. PANCREATIC ENZYMES [Concomitant]

REACTIONS (5)
  - BLOOD GLUCOSE DECREASED [None]
  - BLOOD GLUCOSE INCREASED [None]
  - BLOOD MAGNESIUM DECREASED [None]
  - DEHYDRATION [None]
  - DRUG INEFFECTIVE [None]
